FAERS Safety Report 6443852-6 (Version None)
Quarter: 2009Q4

REPORT INFORMATION
  Report Type: 
  Country: None (occurrence: None)
  Receive Date: 20091117
  Receipt Date: 20091106
  Transmission Date: 20100525
  Serious: Yes (Death)
  Sender: FDA-Public Use
  Company Number: US-AMGEN-US364318

PATIENT
  Sex: Male
  Weight: 142.1 kg

DRUGS (27)
  1. PANITUMUMAB [Suspect]
     Indication: COLORECTAL CANCER
     Route: 042
     Dates: start: 20090610, end: 20090902
  2. ATIVAN [Concomitant]
     Dates: start: 20090511, end: 20090909
  3. COMPAZINE [Concomitant]
     Dates: start: 20090511, end: 20090909
  4. DILANTIN [Concomitant]
     Dates: start: 20090511, end: 20090909
  5. DILTIAZEM [Concomitant]
     Dates: start: 20090511, end: 20090909
  6. FERGON [Concomitant]
     Dates: start: 20090511, end: 20090909
  7. K-DUR [Concomitant]
     Dates: start: 20090511, end: 20090909
  8. KEPPRA [Concomitant]
     Dates: start: 20090511, end: 20090909
  9. LANOXIN [Concomitant]
     Dates: start: 20090511, end: 20090909
  10. LASIX [Concomitant]
     Dates: start: 20090511, end: 20090909
  11. CALTRATE [Concomitant]
     Dates: start: 20090511, end: 20090909
  12. LEVEMIR [Concomitant]
     Dates: start: 20090511, end: 20090909
  13. LISINOPRIL [Concomitant]
     Dates: start: 20090511, end: 20090909
  14. LOMOTIL [Concomitant]
     Dates: start: 20090511, end: 20090909
  15. LOPERAMIDE HYDROCHLORIDE [Concomitant]
     Dates: start: 20090511, end: 20090909
  16. LOTRIMIN [Concomitant]
     Dates: start: 20090511, end: 20090909
  17. MAGNESIUM OXIDE [Concomitant]
     Dates: start: 20090511, end: 20090909
  18. NEURONTIN [Concomitant]
     Dates: start: 20090511, end: 20090909
  19. NOVOLOG [Concomitant]
     Dates: start: 20090511, end: 20090909
  20. OXYCONTIN [Concomitant]
     Dates: start: 20090511, end: 20090909
  21. PROTONIX [Concomitant]
     Dates: start: 20090511, end: 20090909
  22. XANAX [Concomitant]
     Dates: start: 20090511, end: 20090909
  23. CALCIUM WITH VITAMIN D [Concomitant]
     Dates: start: 20080911, end: 20090909
  24. ASCORBIC ACID [Concomitant]
     Dates: start: 20080911, end: 20090909
  25. ZINC SULFATE [Concomitant]
     Dates: start: 20080911, end: 20090909
  26. PYRIDOXINE HYDROCHLORIDE [Concomitant]
     Dates: start: 20080422, end: 20090909
  27. OXYCONTIN [Concomitant]
     Dates: start: 20090902, end: 20090909

REACTIONS (1)
  - CARDIOVASCULAR DISORDER [None]
